FAERS Safety Report 9844683 (Version 1)
Quarter: 2014Q1

REPORT INFORMATION
  Report Type: Spontaneous
  Country: CA (occurrence: CA)
  Receive Date: 20140127
  Receipt Date: 20140127
  Transmission Date: 20141002
  Serious: Yes (Hospitalization)
  Sender: FDA-Public Use
  Company Number: CA-AMGEN-CANSP2014004457

PATIENT
  Age: 58 Year
  Sex: Female

DRUGS (5)
  1. PROLIA [Suspect]
     Indication: PRODUCT USED FOR UNKNOWN INDICATION
     Dosage: 60 MG, Q6MO
     Route: 058
  2. NEXIUM /01479302/ [Suspect]
     Indication: PRODUCT USED FOR UNKNOWN INDICATION
     Route: 065
  3. METOCLOPRAMIDE HYDROCHLORIDE [Concomitant]
     Route: 030
  4. POTASSIUM [Concomitant]
     Route: 065
  5. RISPERIDONE [Concomitant]
     Route: 048

REACTIONS (4)
  - Aggression [Unknown]
  - Blood phosphorus decreased [Unknown]
  - Hypomagnesaemia [Unknown]
  - Irritability [Unknown]
